FAERS Safety Report 6151642-7 (Version None)
Quarter: 2009Q2

REPORT INFORMATION
  Report Type: 
  Country: None (occurrence: None)
  Receive Date: 20090410
  Receipt Date: 20090410
  Transmission Date: 20091009
  Serious: Yes (Other)
  Sender: FDA-Public Use
  Company Number: US-PFIZER INC-2008100543

PATIENT
  Sex: Female
  Weight: 90.9 kg

DRUGS (11)
  1. CHANTIX [Suspect]
     Route: 048
     Dates: start: 20081001
  2. WELLBUTRIN [Concomitant]
  3. CLONAZEPAM [Concomitant]
  4. AMITRIPTYLINE HCL [Concomitant]
  5. DICLOFENAC [Concomitant]
  6. RANITIDINE [Concomitant]
  7. CYCLOBENZAPRINE [Concomitant]
  8. VENLAFAXINE HCL [Concomitant]
  9. LANSOPRAZOLE [Concomitant]
  10. MULTI-VITAMINS [Concomitant]
  11. SIMETHICONE [Concomitant]

REACTIONS (1)
  - VIOLENCE-RELATED SYMPTOM [None]
